FAERS Safety Report 4412957-3 (Version None)
Quarter: 2004Q3

REPORT INFORMATION
  Report Type: 
  Country: None (occurrence: None)
  Receive Date: 20040802
  Receipt Date: 20031105
  Transmission Date: 20050211
  Serious: No
  Sender: FDA-Public Use
  Company Number: US-GLAXOSMITHKLINE-A0433121A

PATIENT
  Age: 3 Month
  Sex: Female

DRUGS (1)
  1. ZANTAC [Suspect]
     Dosage: 1ML TWICE PER DAY
     Route: 048
     Dates: start: 20031104

REACTIONS (3)
  - DRUG INEFFECTIVE [None]
  - PHARMACEUTICAL PRODUCT COMPLAINT [None]
  - RETCHING [None]
